FAERS Safety Report 14964969 (Version 1)
Quarter: 2018Q2

REPORT INFORMATION
  Report Type: Spontaneous
  Country: FR (occurrence: FR)
  Receive Date: 20180601
  Receipt Date: 20180601
  Transmission Date: 20180711
  Serious: Yes (Hospitalization, Other)
  Sender: FDA-Public Use
  Company Number: FR-JNJFOC-20180530325

PATIENT
  Age: 65 Year
  Sex: Male

DRUGS (2)
  1. STELARA [Suspect]
     Active Substance: USTEKINUMAB
     Indication: PSORIASIS
     Route: 058
     Dates: start: 2013
  2. IODINE. [Suspect]
     Active Substance: IODINE
     Indication: PRODUCT USED FOR UNKNOWN INDICATION
     Route: 065

REACTIONS (7)
  - Coronary artery stenosis [Unknown]
  - Brugada syndrome [Unknown]
  - Hepatic cyst [Unknown]
  - Acute kidney injury [Not Recovered/Not Resolved]
  - Hepatocellular injury [Recovered/Resolved]
  - Haematuria [Unknown]
  - Cholera [Unknown]

NARRATIVE: CASE EVENT DATE: 20180404
